FAERS Safety Report 20722153 (Version 1)
Quarter: 2022Q2

REPORT INFORMATION
  Report Type: Spontaneous
  Country: FR (occurrence: FR)
  Receive Date: 20220418
  Receipt Date: 20220418
  Transmission Date: 20220721
  Serious: Yes (Other)
  Sender: FDA-Public Use
  Company Number: FR-KYOWAKIRIN-2022BKK005460

PATIENT

DRUGS (1)
  1. POTELIGEO [Suspect]
     Active Substance: MOGAMULIZUMAB-KPKC
     Indication: Cutaneous T-cell lymphoma
     Dosage: UNK
     Route: 042
     Dates: start: 201904, end: 202109

REACTIONS (4)
  - Basedow^s disease [Unknown]
  - Hyperthyroidism [Unknown]
  - Eosinophilic pustular folliculitis [Unknown]
  - Lymphopenia [Unknown]

NARRATIVE: CASE EVENT DATE: 20190101
